FAERS Safety Report 7888564-7 (Version None)
Quarter: 2011Q4

REPORT INFORMATION
  Report Type: 
  Country: None (occurrence: None)
  Receive Date: 20111103
  Receipt Date: 20111031
  Transmission Date: 20120403
  Serious: Yes (Other)
  Sender: FDA-Public Use
  Company Number: US-PFIZER INC-2011099062

PATIENT
  Sex: Male

DRUGS (4)
  1. OXYCODONE [Concomitant]
     Indication: PAIN
     Dosage: UNK
     Dates: start: 20070101
  2. CHANTIX [Suspect]
     Indication: SMOKING CESSATION THERAPY
     Dosage: STARTER PACK
     Dates: start: 20080305, end: 20080501
  3. DICYCLOMINE [Concomitant]
     Indication: NAUSEA
     Dosage: UNK
  4. SUMATRIPTAN [Concomitant]
     Indication: MIGRAINE
     Dosage: UNK

REACTIONS (10)
  - THINKING ABNORMAL [None]
  - ABNORMAL BEHAVIOUR [None]
  - AFFECT LABILITY [None]
  - DEPRESSION [None]
  - SUICIDE ATTEMPT [None]
  - AMNESIA [None]
  - AGGRESSION [None]
  - INJURY [None]
  - INTENTIONAL OVERDOSE [None]
  - DISTURBANCE IN ATTENTION [None]
